FAERS Safety Report 21995844 (Version 2)
Quarter: 2023Q2

REPORT INFORMATION
  Report Type: Report from Study
  Country: CN (occurrence: None)
  Receive Date: 20230215
  Receipt Date: 20230530
  Transmission Date: 20230722
  Serious: Yes (Life-Threatening, Hospitalization)
  Sender: FDA-Public Use
  Company Number: CN-ROCHE-3285178

PATIENT
  Age: 73 Year
  Sex: Female
  Weight: 75.5 kg

DRUGS (8)
  1. ATEZOLIZUMAB [Suspect]
     Active Substance: ATEZOLIZUMAB
     Indication: Hepatocellular carcinoma
     Dosage: ON 11/JAN/2023, MOST RECENT DOSE OF ATEZOLIZUMAB BEFORE EVENT ONSET WAS GIVEN.
     Route: 041
     Dates: start: 20221220, end: 20230111
  2. BEVACIZUMAB [Suspect]
     Active Substance: BEVACIZUMAB
     Indication: Hepatocellular carcinoma
     Dosage: ON 11/JAN/2023, MOST RECENT DOSE OF BEVACIZUMAB BEFORE EVENT ONSET WAS GIVEN.
     Route: 042
     Dates: start: 20221220, end: 20230111
  3. AMINOPHYLLINE\CHLORPHENIRAMINE MALEATE\METHOXYPHENAMINE HYDROCHLORIDE\ [Concomitant]
     Active Substance: AMINOPHYLLINE\CHLORPHENIRAMINE MALEATE\METHOXYPHENAMINE HYDROCHLORIDE\NOSCAPINE
     Dates: start: 20221020
  4. BICYCLOL [Concomitant]
     Active Substance: BICYCLOL
     Dates: start: 20221111
  5. EUCALYPTOL LIMONENE PINENE [Concomitant]
     Dosage: ENTERIC
     Dates: start: 20221020
  6. NIFEDIPINE [Concomitant]
     Active Substance: NIFEDIPINE
     Dates: start: 2016
  7. METOPROLOL SUCCINATE [Concomitant]
     Active Substance: METOPROLOL SUCCINATE
     Dates: start: 2016
  8. ENTECAVIR [Concomitant]
     Active Substance: ENTECAVIR
     Dates: start: 20221015

REACTIONS (2)
  - Hepatic rupture [Recovering/Resolving]
  - Hepatic haemorrhage [Recovering/Resolving]

NARRATIVE: CASE EVENT DATE: 20230207
